FAERS Safety Report 21011263 (Version 1)
Quarter: 2022Q2

REPORT INFORMATION
  Report Type: Spontaneous
  Country: IT (occurrence: IT)
  Receive Date: 20220627
  Receipt Date: 20220627
  Transmission Date: 20220721
  Serious: Yes (Other)
  Sender: FDA-Public Use
  Company Number: IT-TASMAN PHARMA, INC.-2022TSM00093

PATIENT
  Age: 31 Year
  Sex: Male

DRUGS (9)
  1. CLOZAPINE [Suspect]
     Active Substance: CLOZAPINE
     Indication: Schizophrenia
     Dosage: 25 MG
     Route: 065
     Dates: start: 20210209, end: 20210209
  2. CLOZAPINE [Suspect]
     Active Substance: CLOZAPINE
     Dosage: 50 MG
     Route: 065
     Dates: start: 20210210, end: 20210210
  3. CLOZAPINE [Suspect]
     Active Substance: CLOZAPINE
     Dosage: 75 MG
     Route: 065
     Dates: start: 20210211, end: 20210211
  4. CLOZAPINE [Suspect]
     Active Substance: CLOZAPINE
     Dosage: 100 MG
     Route: 065
     Dates: start: 20210214, end: 20210214
  5. CLOZAPINE [Suspect]
     Active Substance: CLOZAPINE
     Dosage: 150 MG
     Route: 065
     Dates: start: 20210215, end: 20210215
  6. CLOZAPINE [Suspect]
     Active Substance: CLOZAPINE
     Dosage: 200 MG
     Route: 065
     Dates: start: 20210216, end: 20210216
  7. CLOZAPINE [Suspect]
     Active Substance: CLOZAPINE
     Dosage: 300 MG, 1X/DAY
     Route: 065
     Dates: start: 2021, end: 2021
  8. CLOZAPINE [Suspect]
     Active Substance: CLOZAPINE
     Dosage: TITRATED UP TO 200 MG/DAY
     Route: 065
     Dates: start: 20210804
  9. CLOZAPINE [Suspect]
     Active Substance: CLOZAPINE
     Dosage: 350 MG, 1X/DAY (MAINTENANCE DOSE REACHED AT DAY 63)
     Route: 065
     Dates: start: 2021

REACTIONS (1)
  - Myopericarditis [Recovered/Resolved]

NARRATIVE: CASE EVENT DATE: 20210201
